FAERS Safety Report 25932202 (Version 1)
Quarter: 2025Q4

REPORT INFORMATION
  Report Type: Spontaneous
  Country: EU (occurrence: EU)
  Receive Date: 20251016
  Receipt Date: 20251016
  Transmission Date: 20260117
  Serious: Yes (Hospitalization)
  Sender: MERCK SHARP & DOHME LLC
  Company Number: None

PATIENT
  Age: 2 Year
  Sex: Female

DRUGS (1)
  1. VARIVAX [Suspect]
     Active Substance: VARICELLA-ZOSTER VIRUS STRAIN OKA/MERCK LIVE ANTIGEN
     Indication: Immunisation
     Route: 058
     Dates: start: 20231213

REACTIONS (4)
  - Balance disorder [Unknown]
  - Visual impairment [Unknown]
  - Nystagmus [Unknown]
  - Dizziness [Unknown]

NARRATIVE: CASE EVENT DATE: 20231216
